FAERS Safety Report 11649510 (Version 10)
Quarter: 2018Q4

REPORT INFORMATION
  Report Type: Spontaneous
  Country: US (occurrence: US)
  Receive Date: 20151021
  Receipt Date: 20181227
  Transmission Date: 20190204
  Serious: Yes (Hospitalization, Other)
  Sender: FDA-Public Use
  Company Number: US-DSJP-DSU-2015-121609

PATIENT

DRUGS (8)
  1. ACTOS [Concomitant]
     Active Substance: PIOGLITAZONE HYDROCHLORIDE
     Indication: PRODUCT USED FOR UNKNOWN INDICATION
     Dosage: 45 MG, QD
  2. GLUCOTROL [Concomitant]
     Active Substance: GLIPIZIDE
     Indication: PRODUCT USED FOR UNKNOWN INDICATION
     Dosage: 10 MG, QD
     Route: 048
  3. NEXIUM [Concomitant]
     Active Substance: ESOMEPRAZOLE MAGNESIUM
     Indication: PRODUCT USED FOR UNKNOWN INDICATION
     Dosage: 40 MG, QD
  4. NORVASC [Concomitant]
     Active Substance: AMLODIPINE BESYLATE
     Indication: PRODUCT USED FOR UNKNOWN INDICATION
     Dosage: 10 MG, QD
     Route: 048
  5. BENICAR [Suspect]
     Active Substance: OLMESARTAN MEDOXOMIL
     Indication: HYPERTENSION
     Dosage: 40 MG, QD
     Route: 048
     Dates: start: 20050621, end: 20141124
  6. BENICAR HCT [Suspect]
     Active Substance: HYDROCHLOROTHIAZIDE\OLMESARTAN MEDOXOMIL
     Indication: HYPERTENSION
     Dosage: 40/12.5 MG, UNK
  7. GLIPIZIDE. [Concomitant]
     Active Substance: GLIPIZIDE
     Indication: PRODUCT USED FOR UNKNOWN INDICATION
     Dosage: 10 MG, QD
  8. SINGULAIR [Concomitant]
     Active Substance: MONTELUKAST SODIUM
     Indication: PRODUCT USED FOR UNKNOWN INDICATION
     Dosage: 10 MG, QD
     Route: 048
     Dates: start: 20110301

REACTIONS (14)
  - Dyspnoea [Not Recovered/Not Resolved]
  - Reactive gastropathy [Unknown]
  - Pancreatic pseudocyst [Unknown]
  - Intestinal metaplasia [Unknown]
  - Inguinal hernia [Unknown]
  - Hepatomegaly [Unknown]
  - Ileus paralytic [Unknown]
  - Cholelithiasis [Unknown]
  - Acute kidney injury [Unknown]
  - Inflammation [Unknown]
  - Small intestinal obstruction [Unknown]
  - Pancreatitis acute [Recovering/Resolving]
  - Sprue-like enteropathy [Not Recovered/Not Resolved]
  - Gallbladder polyp [Unknown]

NARRATIVE: CASE EVENT DATE: 20071114
